FAERS Safety Report 8339480-8 (Version None)
Quarter: 2012Q2

REPORT INFORMATION
  Report Type: 
  Country: None (occurrence: None)
  Receive Date: 20120507
  Receipt Date: 20120426
  Transmission Date: 20120825
  Serious: Yes (Other)
  Sender: FDA-Public Use
  Company Number: PHHY2012BR036151

PATIENT
  Sex: Female
  Weight: 53 kg

DRUGS (6)
  1. ESTRADERM [Suspect]
     Indication: MENOPAUSAL SYMPTOMS
     Dosage: 50 MCG, 1 PATCH EVERY 3 OR 4 DAYS (2 TIMES WEEKLY)
     Route: 062
  2. SIMVASTATIN [Concomitant]
     Indication: BLOOD CHOLESTEROL
     Dosage: 1 DF, DAILY
     Route: 048
  3. SERTRALINE HYDROCHLORIDE [Concomitant]
     Indication: DEPRESSION
     Dosage: 1 DF, DAILY
     Route: 048
  4. VITAMIN C [Concomitant]
     Indication: ANTIVIRAL PROPHYLAXIS
     Dosage: 1 DF, DAILY
     Route: 048
  5. ATENOLOL AND CHLORTHALIDONE [Concomitant]
     Indication: HYPERTENSION
     Dosage: 50/12.5MG, 1 DF DAILY
     Route: 048
  6. ESTRADERM [Suspect]
     Indication: MENOPAUSAL SYMPTOMS
     Dosage: 25, 1 PATCH EVERY 3 OR 4 DAYS
     Route: 062
     Dates: start: 19950101

REACTIONS (9)
  - PANIC DISORDER [None]
  - HYPERTENSION [None]
  - CAPILLARY FRAGILITY [None]
  - SKIN DISCOLOURATION [None]
  - FEELING HOT [None]
  - BLOOD CHOLESTEROL INCREASED [None]
  - HYPERHIDROSIS [None]
  - DEPRESSION [None]
  - SKIN FRAGILITY [None]
